FAERS Safety Report 4983369-9 (Version None)
Quarter: 2006Q2

REPORT INFORMATION
  Report Type: 
  Country: None (occurrence: None)
  Receive Date: 20060426
  Receipt Date: 20050726
  Transmission Date: 20061013
  Serious: Yes (Hospitalization)
  Sender: FDA-Public Use
  Company Number: US-MERCK-0507USA04130

PATIENT
  Age: 31 Year
  Sex: Female
  Weight: 61 kg

DRUGS (1)
  1. VIOXX [Suspect]
     Indication: BACK PAIN
     Route: 048
     Dates: start: 20001001, end: 20020701

REACTIONS (10)
  - ANXIETY [None]
  - BACK PAIN [None]
  - CHEST PAIN [None]
  - EMOTIONAL DISTRESS [None]
  - FEAR OF DISEASE [None]
  - HEADACHE [None]
  - HYPERTENSION [None]
  - INTERVERTEBRAL DISC PROTRUSION [None]
  - NAUSEA [None]
  - SPINAL DISORDER [None]
